FAERS Safety Report 13568997 (Version 1)
Quarter: 2017Q2

REPORT INFORMATION
  Report Type: Spontaneous
  Country: US (occurrence: US)
  Receive Date: 20170522
  Receipt Date: 20170522
  Transmission Date: 20170830
  Serious: No
  Sender: FDA-Public Use
  Company Number: US-VANDA PHARMACEUTICALS, INC-2017ILOUS001585

PATIENT

DRUGS (2)
  1. FANAPT [Suspect]
     Active Substance: ILOPERIDONE
     Indication: PRODUCT USED FOR UNKNOWN INDICATION
     Dosage: 2 MG, Q AM
     Route: 048
  2. FANAPT [Suspect]
     Active Substance: ILOPERIDONE
     Dosage: 4 MG, QHS
     Route: 048

REACTIONS (1)
  - Hypotension [Unknown]
